FAERS Safety Report 22399761 (Version 1)
Quarter: 2023Q2

REPORT INFORMATION
  Report Type: Spontaneous
  Country: US (occurrence: US)
  Receive Date: 20230602
  Receipt Date: 20230602
  Transmission Date: 20230721
  Serious: No
  Sender: FDA-Public Use
  Company Number: US-TEVA-2023-US-2890521

PATIENT
  Age: 34 Year
  Sex: Female

DRUGS (1)
  1. FINZALA [Suspect]
     Active Substance: ETHINYL ESTRADIOL\NORETHINDRONE ACETATE
     Indication: Polycystic ovaries
     Dosage: 1-20 MG-MCG
     Route: 065
     Dates: start: 2022

REACTIONS (6)
  - Weight fluctuation [Unknown]
  - Mood altered [Unknown]
  - Amenorrhoea [Not Recovered/Not Resolved]
  - Feeling abnormal [Unknown]
  - Drug intolerance [Unknown]
  - Product use in unapproved indication [Unknown]
